FAERS Safety Report 6316623-9 (Version None)
Quarter: 2009Q3

REPORT INFORMATION
  Report Type: 
  Country: None (occurrence: None)
  Receive Date: 20090820
  Receipt Date: 20090812
  Transmission Date: 20100115
  Serious: Yes (Life-Threatening)
  Sender: FDA-Public Use
  Company Number: ES-TEVA-189423USA

PATIENT
  Age: 87 Year
  Sex: Female

DRUGS (6)
  1. BISELECT [Suspect]
     Indication: MYOCARDIAL ISCHAEMIA
     Route: 048
     Dates: start: 20080819, end: 20080911
  2. AMIODARONE HCL [Suspect]
     Indication: ATRIAL FIBRILLATION
     Route: 048
     Dates: start: 20080619, end: 20080911
  3. RAMIPRIL [Concomitant]
     Indication: HYPERTENSION
     Route: 048
  4. DONEPEZIL HCL [Concomitant]
     Route: 048
  5. SERTRALINE [Concomitant]
     Route: 048
  6. MIRTAZAPINE [Concomitant]
     Route: 048

REACTIONS (4)
  - BRADYCARDIA [None]
  - CARDIO-RESPIRATORY ARREST [None]
  - DRUG INTERACTION [None]
  - ELECTROCARDIOGRAM QT PROLONGED [None]
